FAERS Safety Report 6540039-3 (Version None)
Quarter: 2010Q1

REPORT INFORMATION
  Report Type: 
  Country: None (occurrence: None)
  Receive Date: 20100111
  Receipt Date: 20091217
  Transmission Date: 20100710
  Serious: Yes (Hospitalization)
  Sender: FDA-Public Use
  Company Number: 20090916CINRY1136

PATIENT
  Age: 38 Year
  Sex: Male
  Weight: 99.3377 kg

DRUGS (3)
  1. CINRYZE [Suspect]
     Indication: HEREDITARY ANGIOEDEMA
     Dosage: 1000 UNIT, 1 IN 4 D, INTRAVENOUS
     Route: 042
     Dates: start: 20090501, end: 20090918
  2. CINRYZE [Suspect]
     Indication: PROPHYLAXIS
     Dosage: 1000 UNIT, 1 IN 4 D, INTRAVENOUS
     Route: 042
     Dates: start: 20090501, end: 20090918
  3. OXANDROLONE [Concomitant]

REACTIONS (3)
  - DEVICE RELATED INFECTION [None]
  - HEREDITARY ANGIOEDEMA [None]
  - OEDEMA PERIPHERAL [None]
